FAERS Safety Report 14987710 (Version 1)
Quarter: 2018Q2

REPORT INFORMATION
  Report Type: Spontaneous
  Country: US (occurrence: US)
  Receive Date: 20180518
  Receipt Date: 20180518
  Transmission Date: 20180711
  Serious: Yes (Hospitalization, Disabling)
  Sender: FDA-Public Use
  Company Number: None

PATIENT
  Age: 82 Year
  Sex: Male
  Weight: 95.4 kg

DRUGS (1)
  1. NIVOLUMAB [Suspect]
     Active Substance: NIVOLUMAB
     Indication: DESMOPLASTIC MELANOMA
     Dosage: ?          OTHER FREQUENCY:PER CYCLES;?
     Route: 042
     Dates: start: 20170725, end: 20171130

REACTIONS (7)
  - Skin graft [None]
  - Pemphigoid [None]
  - Hypermetabolism [None]
  - Pulmonary mass [None]
  - Dysphagia [None]
  - Metastatic neoplasm [None]
  - Diabetes mellitus inadequate control [None]

NARRATIVE: CASE EVENT DATE: 20171231
